FAERS Safety Report 19251586 (Version 1)
Quarter: 2021Q2

REPORT INFORMATION
  Report Type: Spontaneous
  Country: GB (occurrence: GB)
  Receive Date: 20210513
  Receipt Date: 20210513
  Transmission Date: 20210717
  Serious: Yes (Disabling, Other)
  Sender: FDA-Public Use
  Company Number: GB-ORGANON-O2105GBR000791

PATIENT
  Sex: Female

DRUGS (3)
  1. EUMOVATE [Suspect]
     Active Substance: CLOBETASONE BUTYRATE
     Indication: ECZEMA
     Dosage: TWICE DAILY FOR TWO WEEKS
     Route: 061
     Dates: start: 202101, end: 202102
  2. ELOCON [Suspect]
     Active Substance: MOMETASONE FUROATE
     Indication: ECZEMA
     Dosage: TWICE DAILY FOR TWO WEEKS, THEN AD HOC AS REQUIRED
     Route: 061
     Dates: start: 2018, end: 2021
  3. BETNOVATE [Suspect]
     Active Substance: BETAMETHASONE
     Indication: ECZEMA
     Dosage: TWICE DAILY FOR TWO WEEKS, THEN AD?HOC AS REQUIRED
     Route: 061
     Dates: start: 2016, end: 2017

REACTIONS (2)
  - Skin burning sensation [Not Recovered/Not Resolved]
  - Medication error [Unknown]

NARRATIVE: CASE EVENT DATE: 20210301
